FAERS Safety Report 16863154 (Version 4)
Quarter: 2019Q4

REPORT INFORMATION
  Report Type: Report from Study
  Country: JP (occurrence: JP)
  Receive Date: 20190927
  Receipt Date: 20191211
  Transmission Date: 20200122
  Serious: Yes (Hospitalization, Other)
  Sender: FDA-Public Use
  Company Number: JP-BRISTOL-MYERS SQUIBB COMPANY-BMS-2019-033408

PATIENT
  Age: 67 Year
  Sex: Male
  Weight: 44 kg

DRUGS (2)
  1. NIVOLUMAB [Suspect]
     Active Substance: NIVOLUMAB
     Indication: MALIGNANT MELANOMA
     Dosage: 3 MILLIGRAM/KILOGRAM
     Route: 065
     Dates: start: 20181114, end: 20181226
  2. IPILIMUMAB [Suspect]
     Active Substance: IPILIMUMAB
     Indication: MALIGNANT MELANOMA
     Dosage: 3 MILLIGRAM/KILOGRAM
     Route: 041
     Dates: start: 20181114, end: 20181226

REACTIONS (10)
  - Gangrene [Unknown]
  - Pyrexia [Unknown]
  - Rash [Recovering/Resolving]
  - Hepatic enzyme increased [Recovering/Resolving]
  - Cytomegalovirus enterocolitis [Unknown]
  - Deep vein thrombosis [Unknown]
  - Insomnia [Unknown]
  - Dropped head syndrome [Recovering/Resolving]
  - Myositis [Unknown]
  - Hypertension [Unknown]

NARRATIVE: CASE EVENT DATE: 20181230
